FAERS Safety Report 5024227-3 (Version None)
Quarter: 2006Q2

REPORT INFORMATION
  Report Type: 
  Country: None (occurrence: None)
  Receive Date: 20060426
  Receipt Date: 20060329
  Transmission Date: 20061013
  Serious: Yes (Other)
  Sender: FDA-Public Use
  Company Number: 2006044167

PATIENT
  Sex: Female

DRUGS (1)
  1. LYRICA [Suspect]
     Indication: PAIN
     Dosage: 100 MH (50 MG, 2 IN 1 D)
     Dates: start: 20060101

REACTIONS (7)
  - HYPOAESTHESIA [None]
  - INSOMNIA [None]
  - MUSCLE TWITCHING [None]
  - MYALGIA [None]
  - PARAESTHESIA [None]
  - RESTLESSNESS [None]
  - SENSATION OF HEAVINESS [None]
